FAERS Safety Report 17642028 (Version 2)
Quarter: 2020Q2

REPORT INFORMATION
  Report Type: Report from Study
  Country: None (occurrence: US)
  Receive Date: 20200407
  Receipt Date: 20200430
  Transmission Date: 20200713
  Serious: Yes (Life-Threatening, Hospitalization, Congenital Anomaly, Other)
  Sender: FDA-Public Use
  Company Number: US-ABBVIE-20K-163-3307837-00

PATIENT
  Age: 55 Year
  Sex: Female
  Weight: 102.6 kg

DRUGS (4)
  1. HUMIRA [Suspect]
     Active Substance: ADALIMUMAB
     Indication: UVEITIS
     Route: 058
     Dates: start: 2017, end: 20191202
  2. HUMIRA [Suspect]
     Active Substance: ADALIMUMAB
     Indication: UVEITIS
     Route: 058
     Dates: start: 2019
  3. METOPROLOL. [Concomitant]
     Active Substance: METOPROLOL
     Indication: HYPERTENSION
  4. LOSARTAN. [Concomitant]
     Active Substance: LOSARTAN
     Indication: HYPERTENSION

REACTIONS (20)
  - Dyspnoea [Recovered/Resolved]
  - Cataract [Recovered/Resolved]
  - Musculoskeletal chest pain [Not Recovered/Not Resolved]
  - Phantom limb syndrome [Not Recovered/Not Resolved]
  - Pain in extremity [Recovered/Resolved]
  - Pharyngeal swelling [Recovered/Resolved]
  - Pulmonary embolism [Recovered/Resolved]
  - Procedural pain [Not Recovered/Not Resolved]
  - Neuralgia [Not Recovered/Not Resolved]
  - Uveitis [Recovered/Resolved]
  - Weight increased [Recovering/Resolving]
  - Angiopathy [Unknown]
  - Poor peripheral circulation [Recovered/Resolved]
  - Hypertrophic scar [Unknown]
  - Glaucoma [Recovering/Resolving]
  - Rib excision [Recovered/Resolved]
  - Adverse drug reaction [Not Recovered/Not Resolved]
  - Scoliosis [Unknown]
  - Heart disease congenital [Recovered/Resolved]
  - Feeling abnormal [Recovered/Resolved]

NARRATIVE: CASE EVENT DATE: 2017
